FAERS Safety Report 8798182 (Version 1)
Quarter: 2012Q4

REPORT INFORMATION
  Report Type: 
  Country: US (occurrence: US)
  Receive Date: 20120920
  Receipt Date: 20120920
  Transmission Date: 20130627
  Serious: Yes (Other)
  Sender: FDA-Public Use
  Company Number: US-ABBOTT-12P-163-0981121-00

PATIENT
  Sex: Male

DRUGS (8)
  1. DEPAKOTE [Suspect]
     Dates: start: 20120907
  2. DEPAKOTE [Suspect]
     Indication: CONVULSION
     Dates: end: 20120808
  3. VIMPAT [Concomitant]
     Indication: CONVULSION
  4. DILANTIN [Concomitant]
     Indication: CONVULSION
  5. AVALOX [Concomitant]
     Indication: PRODUCT USED FOR UNKNOWN INDICATION
  6. TOPOMAX [Concomitant]
     Indication: PRODUCT USED FOR UNKNOWN INDICATION
  7. BACLOFEN [Concomitant]
     Indication: PRODUCT USED FOR UNKNOWN INDICATION
  8. PROTONIX [Concomitant]
     Indication: PRODUCT USED FOR UNKNOWN INDICATION

REACTIONS (2)
  - Dysphagia [Not Recovered/Not Resolved]
  - Feeding tube complication [Not Recovered/Not Resolved]
